FAERS Safety Report 18545660 (Version 1)
Quarter: 2020Q4

REPORT INFORMATION
  Report Type: Spontaneous
  Country: US (occurrence: US)
  Receive Date: 20201125
  Receipt Date: 20201125
  Transmission Date: 20210114
  Serious: Yes (Hospitalization, Other)
  Sender: FDA-Public Use
  Company Number: US-009507513-2011USA010843

PATIENT
  Age: 55 Year
  Sex: Male
  Weight: 87 kg

DRUGS (11)
  1. GLEEVEC [Suspect]
     Active Substance: IMATINIB MESYLATE
     Dosage: 600 MG, DAILY
     Route: 048
     Dates: start: 20100418
  2. PEGINTERFERON ALFA-2B [Concomitant]
     Active Substance: PEGINTERFERON ALFA-2B
     Indication: GASTROINTESTINAL STROMAL TUMOUR
     Dosage: 120 UG, WEEKLY
     Route: 058
     Dates: start: 20100421
  3. PEGINTERFERON ALFA-2B [Concomitant]
     Active Substance: PEGINTERFERON ALFA-2B
     Dosage: 240 UG, WEEKLY
     Route: 058
     Dates: start: 20100421
  4. GLEEVEC [Suspect]
     Active Substance: IMATINIB MESYLATE
     Dosage: 400 MG, DAILY
     Route: 048
     Dates: start: 20100410
  5. GLEEVEC [Suspect]
     Active Substance: IMATINIB MESYLATE
     Dosage: 600 MG, DAILY
     Route: 048
     Dates: start: 20100417
  6. PRINIVIL [Suspect]
     Active Substance: LISINOPRIL
     Indication: HYPERTENSION
     Dosage: 30 MG, UNK
     Dates: start: 2005
  7. LAMISIL [Concomitant]
     Active Substance: TERBINAFINE HYDROCHLORIDE
     Indication: FUNGAL INFECTION
     Dosage: 2-3 DROPS
     Dates: start: 20100420
  8. GLEEVEC [Suspect]
     Active Substance: IMATINIB MESYLATE
     Dosage: 800 MG, DAILY
     Route: 048
     Dates: start: 20100419
  9. GLEEVEC [Suspect]
     Active Substance: IMATINIB MESYLATE
     Indication: GASTROINTESTINAL STROMAL TUMOUR
     Dosage: 800 MG, DAILY
     Route: 048
     Dates: start: 20070312
  10. ASPIRIN. [Concomitant]
     Active Substance: ASPIRIN
     Dosage: UNK
     Route: 048
  11. ASPIRIN. [Concomitant]
     Active Substance: ASPIRIN
     Dosage: UNK

REACTIONS (8)
  - Swollen tongue [Recovered/Resolved]
  - Mouth swelling [Recovered/Resolved]
  - Dysphagia [Recovered/Resolved]
  - Gastrointestinal stromal tumour [Unknown]
  - Dyspnoea [Recovered/Resolved]
  - Angioedema [Recovered/Resolved]
  - Pharyngeal swelling [Recovered/Resolved]
  - Malignant neoplasm progression [Unknown]

NARRATIVE: CASE EVENT DATE: 20100409
